FAERS Safety Report 18765635 (Version 1)
Quarter: 2021Q1

REPORT INFORMATION
  Report Type: Report from Study
  Country: PK (occurrence: PK)
  Receive Date: 20210120
  Receipt Date: 20210120
  Transmission Date: 20210419
  Serious: Yes (Death)
  Sender: FDA-Public Use
  Company Number: NVSC2021PK012526

PATIENT
  Age: 38 Year
  Sex: Female
  Weight: 41 kg

DRUGS (1)
  1. GLIVEC [Suspect]
     Active Substance: IMATINIB MESYLATE
     Indication: CHRONIC MYELOID LEUKAEMIA
     Dosage: 4 DF, QD (100 MG 4XOD)
     Route: 048
     Dates: start: 20200311, end: 20200603

REACTIONS (1)
  - Death [Fatal]

NARRATIVE: CASE EVENT DATE: 20200616
